FAERS Safety Report 25184603 (Version 1)
Quarter: 2025Q2

REPORT INFORMATION
  Report Type: Spontaneous
  Country: US (occurrence: None)
  Receive Date: 20250409
  Receipt Date: 20250409
  Transmission Date: 20250716
  Serious: Yes (Other)
  Sender: FDA-CTU
  Company Number: None

PATIENT
  Age: 63 Year
  Sex: Female
  Weight: 66.9 kg

DRUGS (8)
  1. BLINCYTO [Suspect]
     Active Substance: BLINATUMOMAB
     Indication: B-cell type acute leukaemia
     Dosage: 28 UG MICROGRAM(S) DAILY INTRAVENOUS DRIP
     Route: 041
     Dates: start: 20250402, end: 20250404
  2. Dicyclomine 20 mg PO BID [Concomitant]
     Dates: start: 20250401, end: 20250409
  3. Docusate 100 mg PO BID [Concomitant]
     Dates: end: 20250409
  4. Folic acid 1 mg PO Daily [Concomitant]
     Dates: start: 20250401, end: 20250409
  5. Melatonin 5 mg PO Daily [Concomitant]
     Dates: start: 20250331
  6. Paroxetine 40 mg PO Daily [Concomitant]
     Dates: start: 20250401
  7. Simvastatin 40 mg PO Daily [Concomitant]
     Dates: start: 20250401
  8. Pantoprazole 40 mg PO Daily [Concomitant]
     Dates: start: 20250331

REACTIONS (8)
  - Tremor [None]
  - Pyrexia [None]
  - Hypertransaminasaemia [None]
  - Headache [None]
  - Muscle spasms [None]
  - Mental status changes [None]
  - Cognitive disorder [None]
  - Speech disorder [None]

NARRATIVE: CASE EVENT DATE: 20250404
